FAERS Safety Report 5636824-2 (Version None)
Quarter: 2008Q1

REPORT INFORMATION
  Report Type: 
  Country: None (occurrence: None)
  Receive Date: 20080220
  Receipt Date: 20080220
  Transmission Date: 20080703
  Serious: Yes (Other)
  Sender: FDA-Public Use
  Company Number: None

PATIENT
  Age: 30 Year
  Sex: Female
  Weight: 50 kg

DRUGS (3)
  1. GEODON [Suspect]
     Indication: ANXIETY
     Dosage: 80MG ONE A NIGHT PO
     Route: 048
  2. GEODON [Suspect]
     Indication: DEPRESSION
     Dosage: 80MG ONE A NIGHT PO
     Route: 048
  3. GEODON [Suspect]
     Indication: MANIA
     Dosage: 80MG ONE A NIGHT PO
     Route: 048

REACTIONS (2)
  - DYSTONIA [None]
  - NONSPECIFIC REACTION [None]
